FAERS Safety Report 5602611-4 (Version None)
Quarter: 2008Q1

REPORT INFORMATION
  Report Type: 
  Country: None (occurrence: None)
  Receive Date: 20080125
  Receipt Date: 20080122
  Transmission Date: 20080703
  Serious: Yes (Other)
  Sender: FDA-Public Use
  Company Number: PT-BRISTOL-MYERS SQUIBB COMPANY-14052807

PATIENT

DRUGS (1)
  1. ABILIFY [Suspect]

REACTIONS (1)
  - HYPERTENSIVE CRISIS [None]
